FAERS Safety Report 9847497 (Version 3)
Quarter: 2014Q2

REPORT INFORMATION
  Report Type: Spontaneous
  Country: US (occurrence: US)
  Receive Date: 20140127
  Receipt Date: 20140407
  Transmission Date: 20141212
  Serious: Yes (Hospitalization, Other)
  Sender: FDA-Public Use
  Company Number: US-AMGEN-USASP2014004974

PATIENT
  Age: 61 Year
  Sex: Female
  Weight: 82.99 kg

DRUGS (1)
  1. ENBREL [Suspect]
     Indication: RHEUMATOID ARTHRITIS
     Dosage: 50 MG, QWK
     Route: 058
     Dates: start: 20130712

REACTIONS (5)
  - Renal failure [Unknown]
  - Nephrolithiasis [Unknown]
  - Inflammation [Recovered/Resolved]
  - Arthritis [Recovered/Resolved]
  - Musculoskeletal disorder [Recovered/Resolved]
